FAERS Safety Report 9062393 (Version 2)
Quarter: 2013Q2

REPORT INFORMATION
  Report Type: Spontaneous
  Country: FR (occurrence: FR)
  Receive Date: 20130213
  Receipt Date: 20130416
  Transmission Date: 20140414
  Serious: Yes (Hospitalization)
  Sender: FDA-Public Use
  Company Number: FR-GLAXOSMITHKLINE-B0865810A

PATIENT
  Age: 53 Year
  Sex: Female

DRUGS (12)
  1. REVOLADE [Suspect]
     Indication: IDIOPATHIC THROMBOCYTOPENIC PURPURA
     Dosage: 50MG PER DAY
     Route: 048
     Dates: start: 20130109
  2. PAROXETINE [Suspect]
     Indication: DEPRESSION
     Dosage: 20MG PER DAY
     Route: 048
     Dates: start: 20130107, end: 20130121
  3. OCTAGAM [Suspect]
     Indication: AUTOIMMUNE THROMBOCYTOPENIA
     Dosage: 60G PER DAY
     Route: 042
     Dates: start: 20130109, end: 20130110
  4. MABTHERA [Suspect]
     Indication: IDIOPATHIC THROMBOCYTOPENIC PURPURA
     Dosage: 1G SINGLE DOSE
     Route: 042
     Dates: start: 20130115, end: 20130115
  5. ALPRAZOLAM [Suspect]
     Indication: ANXIETY
     Dosage: .25MG PER DAY
     Route: 048
     Dates: start: 20130109
  6. METHYLPREDNISOLONE [Suspect]
     Indication: AUTOIMMUNE THROMBOCYTOPENIA
     Route: 042
     Dates: start: 20130108, end: 20130115
  7. SOLUPRED [Suspect]
     Indication: AUTOIMMUNE THROMBOCYTOPENIA
     Dosage: 20MG THREE TIMES PER DAY
     Route: 048
     Dates: start: 20130116
  8. UVEDOSE [Suspect]
     Indication: PRODUCT USED FOR UNKNOWN INDICATION
     Dosage: 1UNIT SINGLE DOSE
     Route: 048
     Dates: start: 20130106, end: 20130106
  9. ZOPICLONE [Suspect]
     Indication: PRODUCT USED FOR UNKNOWN INDICATION
     Dosage: 1UNIT PER DAY
     Route: 048
     Dates: start: 201212, end: 20130121
  10. CORTICOTHERAPY [Concomitant]
     Indication: IDIOPATHIC THROMBOCYTOPENIC PURPURA
     Route: 048
  11. IMMUNOGLOBULIN [Concomitant]
     Indication: IDIOPATHIC THROMBOCYTOPENIC PURPURA
     Route: 042
  12. PLATELET CONCENTRATE [Concomitant]
     Route: 065
     Dates: start: 20130118, end: 20130118

REACTIONS (6)
  - Toxic skin eruption [Recovered/Resolved]
  - Rash morbilliform [Recovered/Resolved]
  - Pruritus [Recovered/Resolved]
  - Rash maculo-papular [Recovered/Resolved]
  - Purpura [Recovered/Resolved]
  - Mouth haemorrhage [Unknown]
